FAERS Safety Report 13156117 (Version 2)
Quarter: 2017Q1

REPORT INFORMATION
  Report Type: Report from Study
  Country: ES (occurrence: ES)
  Receive Date: 20170126
  Receipt Date: 20170207
  Transmission Date: 20170428
  Serious: Yes (Death, Hospitalization)
  Sender: FDA-Public Use
  Company Number: ES-PFIZER INC-2017025490

PATIENT
  Age: 48 Year
  Sex: Male
  Weight: 70 kg

DRUGS (3)
  1. LEVOFLOXACIN. [Concomitant]
     Active Substance: LEVOFLOXACIN
     Indication: INFLUENZA
     Dosage: 500 MG, 1X/DAY
     Route: 048
     Dates: start: 20170108, end: 20170114
  2. OSELTAMIVIR [Concomitant]
     Active Substance: OSELTAMIVIR
     Indication: INFLUENZA
     Dosage: 75 MG, 2X/DAY
     Route: 048
     Dates: start: 20170108, end: 20170112
  3. PF-06463922 [Suspect]
     Active Substance: LORLATINIB
     Indication: NON-SMALL CELL LUNG CANCER
     Dosage: 100 MG, 1X/DAY FOR 21 DAY CYCLE
     Route: 048
     Dates: start: 20160113, end: 20170108

REACTIONS (3)
  - Amylase increased [Unknown]
  - Lipase increased [Unknown]
  - Neoplasm progression [Fatal]

NARRATIVE: CASE EVENT DATE: 20170117
